FAERS Safety Report 13321652 (Version 1)
Quarter: 2017Q1

REPORT INFORMATION
  Report Type: Spontaneous
  Country: US (occurrence: US)
  Receive Date: 20170310
  Receipt Date: 20170310
  Transmission Date: 20170428
  Serious: Yes (Other)
  Sender: FDA-Public Use
  Company Number: US-PFIZER INC-2017097257

PATIENT

DRUGS (1)
  1. IBRANCE [Suspect]
     Active Substance: PALBOCICLIB
     Dosage: 125 MG (ONE CAPSULE DAILY FOR 21 DAYS ON AND 7 DAYS OFF)

REACTIONS (2)
  - Bone marrow failure [Unknown]
  - White blood cell count decreased [Unknown]
